FAERS Safety Report 8824407 (Version 1)
Quarter: 2012Q4

REPORT INFORMATION
  Report Type: 
  Country: US (occurrence: US)
  Receive Date: 20121004
  Receipt Date: 20121004
  Transmission Date: 20130627
  Serious: No
  Sender: FDA-Public Use
  Company Number: US-B.I. PHARMACEUTICALS,INC./RIDGEFIELD-2012-BP-23633BP

PATIENT
  Sex: Female
  Weight: 58 kg

DRUGS (7)
  1. SPIRIVA [Suspect]
     Indication: CHRONIC OBSTRUCTIVE PULMONARY DISEASE
     Dosage: 18 mcg
     Route: 055
  2. SYMBICORT [Concomitant]
     Indication: CHRONIC OBSTRUCTIVE PULMONARY DISEASE
     Route: 055
     Dates: start: 201001
  3. IPRATROPIUM/ALBUTEROL [Concomitant]
     Indication: CHRONIC OBSTRUCTIVE PULMONARY DISEASE
     Route: 055
     Dates: start: 201001
  4. ZETIA [Concomitant]
     Indication: BLOOD CHOLESTEROL INCREASED
     Dosage: 10 mg
     Route: 048
  5. METOPROLOL [Concomitant]
     Indication: AORTIC ANEURYSM
     Dosage: 100 mg
     Route: 048
  6. LISINOPRIL/HCTZ [Concomitant]
     Indication: HYPERTENSION
     Route: 048
  7. BABY ASPIRIN [Concomitant]
     Dosage: 81 mg
     Route: 048

REACTIONS (2)
  - Ageusia [Not Recovered/Not Resolved]
  - Abnormal loss of weight [Not Recovered/Not Resolved]
